FAERS Safety Report 4521828-3 (Version None)
Quarter: 2004Q4

REPORT INFORMATION
  Report Type: 
  Country: None (occurrence: None)
  Receive Date: 20041206
  Receipt Date: 20041129
  Transmission Date: 20050328
  Serious: Yes (Hospitalization)
  Sender: FDA-Public Use
  Company Number: USA-2004-0017852

PATIENT
  Sex: Female

DRUGS (1)
  1. HYDROMORPHONE HCL [Suspect]
     Indication: PAIN
     Dosage: MG, Q3H, INTRAVENOUS
     Route: 042

REACTIONS (3)
  - COMA [None]
  - MEDICATION ERROR [None]
  - RESPIRATORY DEPRESSION [None]
